FAERS Safety Report 20803564 (Version 3)
Quarter: 2022Q4

REPORT INFORMATION
  Report Type: Spontaneous
  Country: US (occurrence: US)
  Receive Date: 20220509
  Receipt Date: 20221017
  Transmission Date: 20230113
  Serious: No
  Sender: FDA-Public Use
  Company Number: US-PFIZER INC-202200626149

PATIENT
  Age: 66 Year
  Sex: Female

DRUGS (2)
  1. IBRANCE [Suspect]
     Active Substance: PALBOCICLIB
     Dosage: 125 MG
     Dates: start: 20220401
  2. ANASTROZOLE [Concomitant]
     Active Substance: ANASTROZOLE
     Dosage: UNK

REACTIONS (10)
  - Pyrexia [Unknown]
  - Burning sensation [Unknown]
  - Influenza like illness [Unknown]
  - Depressed mood [Unknown]
  - Rash [Unknown]
  - Hypersomnia [Unknown]
  - Pruritus [Recovered/Resolved]
  - Fatigue [Unknown]
  - Cough [Unknown]
  - Thirst [Unknown]

NARRATIVE: CASE EVENT DATE: 20220101
